FAERS Safety Report 5492023-9 (Version None)
Quarter: 2007Q4

REPORT INFORMATION
  Report Type: 
  Country: None (occurrence: None)
  Receive Date: 20071018
  Receipt Date: 20071018
  Transmission Date: 20080405
  Serious: Yes (Disabling, Other)
  Sender: FDA-Public Use
  Company Number: None

PATIENT
  Sex: Female

DRUGS (1)
  1. PHOSPHOSODA FLAVOR NOT SPECIFIED [Suspect]
     Indication: SURGERY
     Dosage: PO
     Route: 048
     Dates: start: 20060613, end: 20060613

REACTIONS (4)
  - DIALYSIS [None]
  - NEPHROCALCINOSIS [None]
  - RENAL FAILURE [None]
  - RENAL TUBULAR DISORDER [None]
